FAERS Safety Report 9127714 (Version 1)
Quarter: 2013Q1

REPORT INFORMATION
  Report Type: Spontaneous
  Country: US (occurrence: US)
  Receive Date: 20130122
  Receipt Date: 20130122
  Transmission Date: 20140127
  Serious: Yes (Other)
  Sender: FDA-Public Use
  Company Number: US-JNJFOC-20130109027

PATIENT
  Age: 78 None
  Sex: Female
  Weight: 73.94 kg

DRUGS (4)
  1. BENADRYL ALLERGY ULTRATAB [Suspect]
     Indication: HYPERSENSITIVITY
     Route: 048
     Dates: start: 20121119
  2. HYDROCHLOROTHIAZIDE [Concomitant]
     Indication: BLOOD PRESSURE
     Dosage: 1-2 MONTHS
     Route: 065
     Dates: start: 201211
  3. METOPROLOL SUCCINATE [Concomitant]
     Indication: BLOOD PRESSURE
     Route: 065
     Dates: start: 201301
  4. LOSARTAN POTASSIUM [Concomitant]
     Indication: BLOOD PRESSURE
     Dosage: 1-2 MONTHS
     Route: 065
     Dates: start: 201209

REACTIONS (2)
  - Hallucination, visual [Unknown]
  - Hallucination [Unknown]
